FAERS Safety Report 11766802 (Version 1)
Quarter: 2015Q4

REPORT INFORMATION
  Report Type: Spontaneous
  Country: US (occurrence: US)
  Receive Date: 20151123
  Receipt Date: 20151123
  Transmission Date: 20160304
  Serious: Yes (Death, Other)
  Sender: FDA-Public Use
  Company Number: US-009507513-1511USA011786

PATIENT
  Sex: Female

DRUGS (1)
  1. JANUVIA [Suspect]
     Active Substance: SITAGLIPTIN PHOSPHATE
     Dosage: UNK
     Route: 048
     Dates: start: 20080728, end: 20130809

REACTIONS (2)
  - Death [Fatal]
  - Pancreatic carcinoma [Unknown]

NARRATIVE: CASE EVENT DATE: 20131121
